FAERS Safety Report 5725274-6 (Version None)
Quarter: 2008Q2

REPORT INFORMATION
  Report Type: 
  Country: None (occurrence: None)
  Receive Date: 20080429
  Receipt Date: 20080421
  Transmission Date: 20081010
  Serious: Yes (Other)
  Sender: FDA-Public Use
  Company Number: GXKR2008JP03801

PATIENT
  Sex: Female

DRUGS (2)
  1. CYCLOSPORINE [Suspect]
     Indication: IMMUNOSUPPRESSION
  2. METHYLPREDNISOLONE [Suspect]
     Indication: IMMUNOSUPPRESSION

REACTIONS (8)
  - COMPLICATIONS OF TRANSPLANT SURGERY [None]
  - COMPUTERISED TOMOGRAM ABNORMAL [None]
  - DIALYSIS [None]
  - HAEMATURIA [None]
  - NEPHRECTOMY [None]
  - REMOVAL OF TRANSPLANTED ORGAN [None]
  - RENAL CELL CARCINOMA STAGE II [None]
  - RENAL DISORDER [None]
